FAERS Safety Report 7282263-0 (Version None)
Quarter: 2010Q4

REPORT INFORMATION
  Report Type: 
  Country: None (occurrence: None)
  Receive Date: 20101221
  Receipt Date: 20100902
  Transmission Date: 20110411
  Serious: Yes (Hospitalization)
  Sender: FDA-Public Use
  Company Number: WAES 1009USA00305

PATIENT
  Age: 89 Year
  Sex: Female

DRUGS (4)
  1. JANUVIA [Suspect]
     Indication: HYPERGLYCAEMIA
     Dosage: 25 MG/DAILY/PO
     Route: 048
     Dates: start: 20100813, end: 20100820
  2. PROTINIX [Concomitant]
  3. DOCUSATE SODIUM [Concomitant]
  4. METOPROLOL [Concomitant]

REACTIONS (1)
  - PANCREATITIS [None]
